APPROVED DRUG PRODUCT: PROBENECID
Active Ingredient: PROBENECID
Strength: 500MG
Dosage Form/Route: TABLET;ORAL
Application: A083740 | Product #001
Applicant: IVAX PHARMACEUTICALS INC SUB TEVA PHARMACEUTICALS USA
Approved: May 9, 1984 | RLD: No | RS: No | Type: DISCN